FAERS Safety Report 10237229 (Version 3)
Quarter: 2014Q4

REPORT INFORMATION
  Report Type: Spontaneous
  Country: US (occurrence: US)
  Receive Date: 20140613
  Receipt Date: 20141020
  Transmission Date: 20150528
  Serious: Yes (Other)
  Sender: FDA-Public Use
  Company Number: US-BIOMARINAP-US-2014-103438

PATIENT
  Sex: Male

DRUGS (2)
  1. ALDURAZYME [Suspect]
     Active Substance: LARONIDASE
     Indication: MUCOPOLYSACCHARIDOSIS I
     Dosage: 69.6 MG, QW
     Route: 042
     Dates: start: 200512
  2. ALDURAZYME [Suspect]
     Active Substance: LARONIDASE
     Dosage: 69.6 MG, QW
     Route: 042
     Dates: start: 20031016

REACTIONS (5)
  - Ill-defined disorder [Recovered/Resolved]
  - Corneal transplant [Unknown]
  - Drug dose omission [Unknown]
  - Weight increased [Unknown]
  - Respiratory tract congestion [Unknown]
